FAERS Safety Report 4627453-8 (Version None)
Quarter: 2005Q1

REPORT INFORMATION
  Report Type: 
  Country: None (occurrence: None)
  Receive Date: 20050331
  Receipt Date: 20050322
  Transmission Date: 20050727
  Serious: Yes (Hospitalization)
  Sender: FDA-Public Use
  Company Number: 2005048603

PATIENT
  Age: 62 Year
  Sex: Male

DRUGS (2)
  1. AMLODIPINE [Suspect]
     Indication: HYPERTENSION
     Dosage: 5 MG (5 MG, 1 IN 24 HR), ORAL
     Route: 048
     Dates: start: 19980404
  2. ATENOLOL [Concomitant]

REACTIONS (3)
  - ISCHAEMIA [None]
  - PROCEDURAL COMPLICATION [None]
  - VENOUS OCCLUSION [None]
